FAERS Safety Report 7540171-1 (Version None)
Quarter: 2011Q2

REPORT INFORMATION
  Report Type: 
  Country: None (occurrence: None)
  Receive Date: 20110610
  Receipt Date: 20110531
  Transmission Date: 20111010
  Serious: Yes (Other)
  Sender: FDA-Public Use
  Company Number: FR-GILEAD-E2B_00001266

PATIENT
  Age: 38 Year
  Sex: Female

DRUGS (4)
  1. CYCLOPHOSPHAMIDE [Concomitant]
     Indication: HAEMOLYTIC ANAEMIA
     Dates: start: 20060101
  2. AMBRISENTAN [Suspect]
     Indication: PULMONARY ARTERIAL HYPERTENSION
     Route: 048
     Dates: start: 20100101
  3. PLAQUENIL [Concomitant]
     Indication: SYSTEMIC LUPUS ERYTHEMATOSUS
     Route: 065
     Dates: start: 20080101
  4. OMEPRAZOLE [Concomitant]

REACTIONS (3)
  - METRORRHAGIA [None]
  - THROMBOCYTOPENIA [None]
  - AUTOIMMUNE THROMBOCYTOPENIA [None]
